FAERS Safety Report 8200063-1 (Version None)
Quarter: 2012Q1

REPORT INFORMATION
  Report Type: 
  Country: None (occurrence: None)
  Receive Date: 20120312
  Receipt Date: 20120229
  Transmission Date: 20120608
  Serious: Yes (Hospitalization)
  Sender: FDA-Public Use
  Company Number: US-CELGENEUS-163-21880-12020586

PATIENT
  Sex: Female
  Weight: 60.382 kg

DRUGS (13)
  1. IRON [Concomitant]
     Route: 065
  2. ACYCLOVIR [Concomitant]
     Dosage: 800 MILLIGRAM
     Route: 065
  3. PAROXETINE [Concomitant]
     Dosage: 40 MILLIGRAM
     Route: 065
  4. REVLIMID [Suspect]
     Indication: MULTIPLE MYELOMA
     Dosage: 10 MILLIGRAM
     Route: 048
     Dates: start: 20120110
  5. PERCOCET [Concomitant]
     Indication: PAIN
     Route: 065
  6. ACETAMINOPHEN [Concomitant]
     Indication: PAIN
     Route: 065
  7. WARFARIN SODIUM [Concomitant]
     Indication: ANTICOAGULANT THERAPY
     Route: 065
  8. POTASSIUM CL [Concomitant]
     Dosage: 20 MILLIEQUIVALENTS
     Route: 048
  9. PROCHLORPERAZINE [Concomitant]
     Dosage: 10 MILLIGRAM
     Route: 065
  10. REVLIMID [Suspect]
     Dosage: 20 MILLIGRAM
     Route: 048
     Dates: start: 20120201
  11. COUMADIN [Concomitant]
     Dosage: 2 MILLIGRAM
     Route: 065
  12. VALIUM [Concomitant]
     Indication: PAIN
     Route: 065
  13. CHLORDIAZEPOXIDE HCL W/ CLIDINIUM BROMIDE [Concomitant]
     Route: 065

REACTIONS (5)
  - DISLOCATION OF VERTEBRA [None]
  - RED BLOOD CELL COUNT DECREASED [None]
  - WHITE BLOOD CELL COUNT DECREASED [None]
  - PAIN [None]
  - BLOOD POTASSIUM DECREASED [None]
